FAERS Safety Report 24292759 (Version 1)
Quarter: 2024Q3

REPORT INFORMATION
  Report Type: Spontaneous
  Country: US (occurrence: None)
  Receive Date: 20240906
  Receipt Date: 20240906
  Transmission Date: 20241017
  Serious: No
  Sender: DOMPE FARMACEUTICI
  Company Number: US-FARMAPROD-202310-3040

PATIENT
  Sex: Female

DRUGS (11)
  1. OXERVATE [Suspect]
     Active Substance: CENEGERMIN-BKBJ
     Indication: Neurotrophic keratopathy
     Route: 047
     Dates: start: 20231002
  2. CEQUA [Concomitant]
     Active Substance: CYCLOSPORINE
  3. UNSPECIFIED INGREDIENT [Concomitant]
     Active Substance: UNSPECIFIED INGREDIENT
  4. CEVIMELINE HYDROCHLORIDE [Concomitant]
     Active Substance: CEVIMELINE HYDROCHLORIDE
  5. OMEGA-3 ACIDS [Concomitant]
     Active Substance: OMEGA-3 FATTY ACIDS
  6. VITAMINS [Concomitant]
     Active Substance: VITAMINS
  7. ESTRADIOL [Concomitant]
     Active Substance: ESTRADIOL
  8. PROGESTERONE [Concomitant]
     Active Substance: PROGESTERONE
  9. HYDROXYCHLOROQUINE SULFATE [Concomitant]
     Active Substance: HYDROXYCHLOROQUINE SULFATE
  10. SYSTANE HYDRATION PF [Concomitant]
  11. PENICILLIN [Concomitant]
     Active Substance: PENICILLIN
     Dates: start: 202310

REACTIONS (1)
  - Eye pain [Unknown]
